FAERS Safety Report 20323109 (Version 3)
Quarter: 2024Q1

REPORT INFORMATION
  Report Type: Spontaneous
  Country: US (occurrence: US)
  Receive Date: 20220111
  Receipt Date: 20240125
  Transmission Date: 20240410
  Serious: No
  Sender: FDA-Public Use
  Company Number: US-PFIZER INC-202101843164

PATIENT
  Age: 57 Year
  Sex: Female
  Weight: 68.04 kg

DRUGS (2)
  1. RAPAMUNE [Suspect]
     Active Substance: SIROLIMUS
     Indication: Lymphangioleiomyomatosis
     Dosage: 7 MG, 1X/DAY (TAKES SEVEN 1MG TABLETS ONCE A DAY)
     Route: 048
     Dates: start: 2012
  2. ROSUVASTATIN [Concomitant]
     Active Substance: ROSUVASTATIN
     Indication: Blood cholesterol increased
     Dosage: 5 MG, 1X/DAY
     Route: 048
     Dates: start: 202102

REACTIONS (4)
  - Off label use [Unknown]
  - Hypertension [Unknown]
  - Suspected COVID-19 [Unknown]
  - Blood cholesterol increased [Unknown]

NARRATIVE: CASE EVENT DATE: 20190101
